FAERS Safety Report 5258243-3 (Version None)
Quarter: 2007Q1

REPORT INFORMATION
  Report Type: 
  Country: None (occurrence: None)
  Receive Date: 20070302
  Receipt Date: 20070223
  Transmission Date: 20070707
  Serious: Yes (Life-Threatening)
  Sender: FDA-Public Use
  Company Number: 07H-153-0312084-00

PATIENT
  Age: 47 Year
  Sex: Male
  Weight: 65 kg

DRUGS (6)
  1. CLINDAMYCIN [Suspect]
     Indication: ANTIBIOTIC PROPHYLAXIS
     Dosage: 600 MG, INTRAVENOUS INFUSION
     Route: 042
  2. FENTANYL [Concomitant]
  3. THIAMYLAL (THIAMYLAL) [Concomitant]
  4. ROCURONIUM (ROCURONIUM) [Concomitant]
  5. BETA-IODINE (POVIDONE-IODINE) [Concomitant]
  6. LACTATED RINGER'S SOLUTION (RINGER-LACTATE SOLUTION ^FRESENIUS^) [Concomitant]

REACTIONS (1)
  - ANAPHYLACTIC SHOCK [None]
